FAERS Safety Report 24753645 (Version 1)
Quarter: 2024Q4

REPORT INFORMATION
  Report Type: Spontaneous
  Country: GB (occurrence: GB)
  Receive Date: 20241219
  Receipt Date: 20241219
  Transmission Date: 20250114
  Serious: Yes (Other)
  Sender: PFIZER
  Company Number: None

PATIENT
  Age: 22 Year
  Sex: Female

DRUGS (1)
  1. DOXYCYCLINE [Suspect]
     Active Substance: DOXYCYCLINE
     Dosage: 100 MG, 2X/DAY
     Dates: start: 20241211

REACTIONS (2)
  - Vomiting [Not Recovered/Not Resolved]
  - Burn oesophageal [Not Recovered/Not Resolved]

NARRATIVE: CASE EVENT DATE: 20241211
